FAERS Safety Report 19082738 (Version 1)
Quarter: 2021Q2

REPORT INFORMATION
  Report Type: Spontaneous
  Country: US (occurrence: US)
  Receive Date: 20210401
  Receipt Date: 20210401
  Transmission Date: 20210717
  Serious: Yes (Hospitalization)
  Sender: FDA-Public Use
  Company Number: None

PATIENT
  Age: 94 Year
  Sex: Male

DRUGS (1)
  1. MIRTAZAPINE (MIRTAZAPINE 30MG TAB) [Suspect]
     Active Substance: MIRTAZAPINE
     Indication: DEPRESSION
     Dosage: OTHER FREQUENCY:AT BEDTIME;?
     Route: 048
     Dates: start: 20210209, end: 20210331

REACTIONS (9)
  - Metabolic disorder [None]
  - Hallucination [None]
  - Delirium [None]
  - Thirst [None]
  - Mental status changes [None]
  - Agitation [None]
  - Disorientation [None]
  - Hepatic enzyme increased [None]
  - Confusional state [None]

NARRATIVE: CASE EVENT DATE: 20210315
